FAERS Safety Report 9819529 (Version 1)
Quarter: 2014Q1

REPORT INFORMATION
  Report Type: Spontaneous
  Country: US (occurrence: None)
  Receive Date: 20140113
  Receipt Date: 20140113
  Transmission Date: 20141002
  Serious: Yes (Hospitalization)
  Sender: FDA-Public Use
  Company Number: 2013P1022421

PATIENT
  Age: 78 Year
  Sex: Female

DRUGS (1)
  1. SULFAMETHOXAZOLE AND TRIMETHOPRIM [Suspect]
     Indication: ARTHROPOD BITE

REACTIONS (27)
  - Pyrexia [None]
  - Chills [None]
  - Fatigue [None]
  - Myalgia [None]
  - Syncope [None]
  - Erythema [None]
  - Toxicity to various agents [None]
  - White blood cell count decreased [None]
  - Platelet count decreased [None]
  - Neutrophil percentage decreased [None]
  - Aspartate aminotransferase increased [None]
  - Alanine aminotransferase increased [None]
  - Dyspnoea [None]
  - Blood pH increased [None]
  - PO2 decreased [None]
  - PCO2 decreased [None]
  - Pulmonary congestion [None]
  - Electrocardiogram ST segment elevation [None]
  - Blood creatine phosphokinase increased [None]
  - Blood creatine phosphokinase MB increased [None]
  - Troponin increased [None]
  - Left ventricular dysfunction [None]
  - Ventricular hypokinesia [None]
  - Ejection fraction decreased [None]
  - Arteriosclerosis coronary artery [None]
  - Ehrlichia test positive [None]
  - Inflammation [None]
